FAERS Safety Report 14185370 (Version 1)
Quarter: 2017Q4

REPORT INFORMATION
  Report Type: Spontaneous
  Country: US (occurrence: US)
  Receive Date: 20171114
  Receipt Date: 20171114
  Transmission Date: 20180321
  Serious: No
  Sender: FDA-Public Use
  Company Number: US-TARO-2016TAR00846

PATIENT
  Age: 67 Year
  Sex: Female
  Weight: 55.33 kg

DRUGS (13)
  1. PRO-OMEGA 650 EPA/ 450 DHA [Concomitant]
     Route: 048
  2. ELECTRO-VITA-MIN DAILY [Concomitant]
     Dosage: UNK, 3X/DAY
     Route: 048
  3. SELENIUM (BLUEBONNET) [Concomitant]
     Dosage: 1 CAPSULES, 1X/DAY
     Route: 048
  4. MULTI PROBIOTIC [Concomitant]
     Dosage: UNK UNK, 1X/DAY
     Route: 048
  5. VITAMIN B COMPLEX NOS [Concomitant]
     Active Substance: CYANOCOBALAMIN\PYRIDOXINE HYDROCHLORIDE\RIBOFLAVIN\SODIUM PANTOTHENATE\THIAMINE HYDROCHLORIDE\VITAMIN B COMPLEX
     Route: 048
  6. Q-ZYME DIGESTIVE ENZYME [Concomitant]
     Route: 048
  7. VITAMIN B12 [Concomitant]
     Active Substance: CYANOCOBALAMIN
     Route: 048
  8. MAGNESIUM CITRATE POWDER [Concomitant]
     Dosage: UNK, 3X/DAY
     Route: 048
  9. MUPIROCIN OINTMENT USP 2% [Suspect]
     Active Substance: MUPIROCIN
     Indication: SKIN DISORDER
     Dosage: UNK UNK, AS NEEDED
     Route: 061
     Dates: start: 2013, end: 201610
  10. VITAMIN D3 [Concomitant]
     Active Substance: CHOLECALCIFEROL
  11. MAGNESIUM CITRATE. [Concomitant]
     Active Substance: MAGNESIUM CITRATE
     Dosage: UNK UNK, 1X/DAY
     Route: 048
  12. METRONIDAZOLE GEL 0.75% (G+W) [Concomitant]
     Dosage: USED VERY RARELY
  13. METRONIDAZOLE GEL USP 0.75% [Suspect]
     Active Substance: METRONIDAZOLE
     Indication: ROSACEA
     Dosage: UNK UNK, 2X/DAY
     Route: 061
     Dates: start: 2012, end: 2015

REACTIONS (7)
  - Application site hypersensitivity [Not Recovered/Not Resolved]
  - Nausea [Not Recovered/Not Resolved]
  - Depressed mood [Not Recovered/Not Resolved]
  - Coeliac disease [Not Recovered/Not Resolved]
  - Abdominal pain upper [Not Recovered/Not Resolved]
  - Eyelid function disorder [Not Recovered/Not Resolved]
  - Fatigue [Recovering/Resolving]

NARRATIVE: CASE EVENT DATE: 201604
